FAERS Safety Report 7395308-4 (Version None)
Quarter: 2011Q2

REPORT INFORMATION
  Report Type: 
  Country: None (occurrence: None)
  Receive Date: 20110405
  Receipt Date: 20110404
  Transmission Date: 20111010
  Serious: Yes (Other)
  Sender: FDA-Public Use
  Company Number: US-CEPHALON-2009010604

PATIENT
  Sex: Female
  Weight: 59 kg

DRUGS (2)
  1. FENTORA [Suspect]
     Indication: COMPLEX REGIONAL PAIN SYNDROME
     Route: 002
     Dates: end: 20090601
  2. DURAGESIC-50 [Concomitant]
     Dates: start: 20030101

REACTIONS (8)
  - DENTAL CARIES [None]
  - LOOSE TOOTH [None]
  - GINGIVAL PAIN [None]
  - GINGIVAL ABSCESS [None]
  - CHEILITIS [None]
  - GINGIVAL ERYTHEMA [None]
  - TONGUE HAEMORRHAGE [None]
  - ABSCESS ORAL [None]
